FAERS Safety Report 5102619-1 (Version None)
Quarter: 2006Q3

REPORT INFORMATION
  Report Type: 
  Country: None (occurrence: None)
  Receive Date: 20060907
  Receipt Date: 20060829
  Transmission Date: 20061208
  Serious: Yes (Other)
  Sender: FDA-Public Use
  Company Number: 229306

PATIENT
  Age: 82 Year
  Sex: Male

DRUGS (1)
  1. LUCENTIS [Suspect]
     Indication: DRUG USE FOR UNKNOWN INDICATION
     Dates: start: 20060705

REACTIONS (3)
  - BLOOD PRESSURE INCREASED [None]
  - DERMATITIS CONTACT [None]
  - EXPOSURE TO TOXIC AGENT [None]
